FAERS Safety Report 4661094-1 (Version None)
Quarter: 2005Q2

REPORT INFORMATION
  Report Type: 
  Country: None (occurrence: None)
  Receive Date: 20050511
  Receipt Date: 20050428
  Transmission Date: 20051028
  Serious: No
  Sender: FDA-Public Use
  Company Number: 2005061514

PATIENT
  Sex: Male

DRUGS (1)
  1. XANAX [Suspect]
     Indication: ILL-DEFINED DISORDER
     Dosage: 0.75 MG (0.25 MG), ORAL
     Route: 048

REACTIONS (1)
  - AGGRESSION [None]
